FAERS Safety Report 6434460-1 (Version None)
Quarter: 2009Q4

REPORT INFORMATION
  Report Type: 
  Country: None (occurrence: None)
  Receive Date: 20091110
  Receipt Date: 20091029
  Transmission Date: 20100525
  Serious: Yes (Death)
  Sender: FDA-Public Use
  Company Number: KR-PFIZER INC-2009284119

PATIENT
  Sex: Male
  Weight: 64 kg

DRUGS (4)
  1. VORICONAZOLE [Suspect]
     Indication: ASPERGILLOSIS
     Dosage: 200 MG, 2X/DAY
     Route: 048
     Dates: start: 20080225, end: 20080428
  2. TOPIRAMATE [Concomitant]
     Indication: CONVULSION
     Dosage: 50 MG, 1X/DAY
     Route: 048
     Dates: start: 20080205, end: 20080428
  3. PREDNISOLONE [Concomitant]
     Indication: IMMUNE SYSTEM DISORDER
     Dosage: 10 MG, 1X/DAY
     Route: 048
     Dates: start: 20080105, end: 20080428
  4. TACROLIMUS [Concomitant]
     Indication: IMMUNOSUPPRESSION
     Dosage: 0.5 MG, 2X/DAY
     Route: 048
     Dates: start: 20080313, end: 20080428

REACTIONS (1)
  - DEATH [None]
